FAERS Safety Report 12264910 (Version 1)
Quarter: 2016Q2

REPORT INFORMATION
  Report Type: Spontaneous
  Country: US (occurrence: US)
  Receive Date: 20160413
  Receipt Date: 20160413
  Transmission Date: 20160815
  Serious: No
  Sender: FDA-Public Use
  Company Number: US-JNJFOC-20160310569

PATIENT
  Age: 45 Year
  Sex: Female
  Weight: 73.48 kg

DRUGS (3)
  1. TYLENOL EXTRA STRENGTH [Suspect]
     Active Substance: ACETAMINOPHEN
     Indication: BACK PAIN
     Dosage: 2-3 CAPLETS PER DOSE AS NEEDED MAYBE UP TO 3 TIMES A WEEK
     Route: 048
  2. TYLENOL EXTRA STRENGTH [Suspect]
     Active Substance: ACETAMINOPHEN
     Indication: PAIN IN EXTREMITY
     Dosage: 2-3 CAPLETS PER DOSE AS NEEDED MAYBE UP TO 3 TIMES A WEEK
     Route: 048
  3. TYLENOL EXTRA STRENGTH [Suspect]
     Active Substance: ACETAMINOPHEN
     Indication: MIGRAINE
     Dosage: 2-3 CAPLETS PER DOSE AS NEEDED MAYBE UP TO 3 TIMES A WEEK
     Route: 048

REACTIONS (2)
  - Drug ineffective [Unknown]
  - Incorrect dosage administered [Unknown]
